FAERS Safety Report 10470735 (Version 2)
Quarter: 2014Q4

REPORT INFORMATION
  Report Type: Spontaneous
  Country: CA (occurrence: CA)
  Receive Date: 20140923
  Receipt Date: 20141008
  Transmission Date: 20150528
  Serious: Yes (Other)
  Sender: FDA-Public Use
  Company Number: CA-GLAXOSMITHKLINE-A1089569A

PATIENT
  Sex: Female

DRUGS (1)
  1. VALTREX [Suspect]
     Active Substance: VALACYCLOVIR HYDROCHLORIDE
     Indication: VIRAL RASH
     Dosage: 500 MG, BID
     Route: 065
     Dates: start: 20140916

REACTIONS (5)
  - Cerebrovascular accident [Unknown]
  - Oral pain [Unknown]
  - Oral disorder [Unknown]
  - Jaw disorder [Unknown]
  - Dyskinesia [Unknown]

NARRATIVE: CASE EVENT DATE: 20140917
